FAERS Safety Report 10353646 (Version 1)
Quarter: 2014Q3

REPORT INFORMATION
  Report Type: Report from Study
  Country: US (occurrence: US)
  Receive Date: 20140731
  Receipt Date: 20140731
  Transmission Date: 20150326
  Serious: Yes (Other)
  Sender: FDA-Public Use
  Company Number: US-ROCHE-1398826

PATIENT
  Sex: Female
  Weight: 84 kg

DRUGS (13)
  1. BIAXIN [Concomitant]
     Active Substance: CLARITHROMYCIN
     Route: 048
  2. HYDROXYZINE [Concomitant]
     Active Substance: HYDROXYZINE\HYDROXYZINE HYDROCHLORIDE
  3. PEPCID [Concomitant]
     Active Substance: FAMOTIDINE
     Route: 048
  4. CROMOLYN SODIUM. [Concomitant]
     Active Substance: CROMOLYN SODIUM
     Dosage: 100 MG /5 ML
     Route: 065
  5. DOXEPIN [Concomitant]
     Active Substance: DOXEPIN
  6. XOLAIR [Suspect]
     Active Substance: OMALIZUMAB
     Indication: URTICARIA
     Route: 058
  7. BENADRYL [Suspect]
     Active Substance: DIPHENHYDRAMINE HYDROCHLORIDE
     Indication: PRODUCT USED FOR UNKNOWN INDICATION
     Route: 065
  8. ZYRTEC [Concomitant]
     Active Substance: CETIRIZINE HYDROCHLORIDE
     Route: 048
  9. EPIPEN [Concomitant]
     Active Substance: EPINEPHRINE
     Route: 065
  10. ALLEGRA [Concomitant]
     Active Substance: FEXOFENADINE HYDROCHLORIDE
     Route: 048
  11. CLARITIN [Concomitant]
     Active Substance: LORATADINE
  12. FEXOFENADINE [Concomitant]
     Active Substance: FEXOFENADINE\FEXOFENADINE HYDROCHLORIDE
  13. ZANTAC [Concomitant]
     Active Substance: RANITIDINE HYDROCHLORIDE

REACTIONS (18)
  - Chest pain [Recovered/Resolved]
  - Dyspepsia [Unknown]
  - Abdominal pain [Unknown]
  - Anaphylactic reaction [Unknown]
  - Oedema peripheral [Unknown]
  - Haematuria [Unknown]
  - Urticaria [Unknown]
  - Sedation [Unknown]
  - Dysuria [Unknown]
  - Incontinence [Unknown]
  - Somnolence [Unknown]
  - Palpitations [Recovered/Resolved]
  - Urticaria [Recovered/Resolved]
  - Bronchitis [Unknown]
  - Diarrhoea [Unknown]
  - Arthralgia [Unknown]
  - Malaise [Unknown]
  - Urinary tract infection [Unknown]
